FAERS Safety Report 20024518 (Version 2)
Quarter: 2021Q4

REPORT INFORMATION
  Report Type: Spontaneous
  Country: IN (occurrence: IN)
  Receive Date: 20211102
  Receipt Date: 20211201
  Transmission Date: 20220303
  Serious: Yes (Hospitalization)
  Sender: FDA-Public Use
  Company Number: IN-PFIZER INC-2020390620

PATIENT
  Age: 29 Year
  Sex: Male

DRUGS (10)
  1. LORLATINIB [Suspect]
     Active Substance: LORLATINIB
     Dosage: 50 MG, 2X/DAY (2 TABLETS TWICE DAILY)
     Route: 048
     Dates: start: 20201007
  2. LORLATINIB [Suspect]
     Active Substance: LORLATINIB
     Dosage: 100 MG, DAILY
     Route: 048
     Dates: start: 20201215
  3. LORLATINIB [Suspect]
     Active Substance: LORLATINIB
     Dosage: 100 MG, DAILY
     Route: 048
     Dates: start: 20210202
  4. LORLATINIB [Suspect]
     Active Substance: LORLATINIB
     Dosage: 50 MG, 2X/DAY (25MG, 2 TAB)
     Route: 048
     Dates: start: 20210215
  5. LORLATINIB [Suspect]
     Active Substance: LORLATINIB
     Dosage: 50 MG
     Route: 048
     Dates: start: 20210312
  6. LORLATINIB [Suspect]
     Active Substance: LORLATINIB
     Dosage: 50 MG, 2X/DAY (2 TABS, TWICE DAILY)
     Route: 048
     Dates: start: 20210401
  7. LORLATINIB [Suspect]
     Active Substance: LORLATINIB
     Dosage: 50 MG, 2X/DAY (25MG TAB X 2TAB, TWICE DAILY)
     Route: 048
     Dates: start: 20210412
  8. LORLATINIB [Suspect]
     Active Substance: LORLATINIB
     Dosage: 2 DF, 2X/DAY
     Route: 048
     Dates: start: 20210603
  9. LORLATINIB [Suspect]
     Active Substance: LORLATINIB
     Dosage: 50 MG, 2X/DAY
     Dates: end: 20210928
  10. LORLATINIB [Suspect]
     Active Substance: LORLATINIB
     Dosage: 50 MG, 1X/DAY
     Dates: start: 20210928

REACTIONS (3)
  - Illness [Unknown]
  - Neoplasm progression [Unknown]
  - Off label use [Unknown]
